FAERS Safety Report 7215939-1 (Version None)
Quarter: 2011Q1

REPORT INFORMATION
  Report Type: 
  Country: None (occurrence: None)
  Receive Date: 20110104
  Receipt Date: 20110104
  Transmission Date: 20110831
  Serious: Yes (Hospitalization)
  Sender: FDA-Public Use
  Company Number: None

PATIENT
  Age: 64 Year
  Sex: Female

DRUGS (10)
  1. REVLIMID [Suspect]
     Indication: MULTIPLE MYELOMA
     Dosage: 10MG DAILY ORALLY
     Route: 048
     Dates: start: 20100901
  2. BENZONATATE [Concomitant]
  3. COLACE [Concomitant]
  4. PRILOSEC [Concomitant]
  5. CIPRO [Concomitant]
  6. CEFEPIME [Concomitant]
  7. WARFARIN SODIUM [Concomitant]
  8. PAMELOR [Concomitant]
  9. ZOFRAN [Concomitant]
  10. GABAPENTIN [Concomitant]

REACTIONS (8)
  - PNEUMONIA [None]
  - HERPES ZOSTER [None]
  - CHYLOTHORAX [None]
  - OSTEOARTHRITIS [None]
  - NON-HODGKIN'S LYMPHOMA [None]
  - ANXIETY [None]
  - FEBRILE NEUTROPENIA [None]
  - ENTEROCOCCAL INFECTION [None]
